FAERS Safety Report 14175777 (Version 2)
Quarter: 2018Q1

REPORT INFORMATION
  Report Type: Spontaneous
  Country: CA (occurrence: CA)
  Receive Date: 20171109
  Receipt Date: 20180216
  Transmission Date: 20180508
  Serious: Yes (Other)
  Sender: FDA-Public Use
  Company Number: CA-SA-2017SA210776

PATIENT
  Sex: Female
  Weight: 52 kg

DRUGS (16)
  1. LEFLUNOMIDE. [Suspect]
     Active Substance: LEFLUNOMIDE
     Indication: RHEUMATOID ARTHRITIS
     Route: 048
  2. DIAMICRON [Suspect]
     Active Substance: GLICLAZIDE
     Route: 065
  3. ROSUVASTATIN CALCIUM. [Suspect]
     Active Substance: ROSUVASTATIN CALCIUM
     Route: 065
  4. SULFASALAZINE. [Concomitant]
     Active Substance: SULFASALAZINE
     Route: 065
  5. BACLOFEN. [Suspect]
     Active Substance: BACLOFEN
     Route: 065
  6. JANUVIA [Suspect]
     Active Substance: SITAGLIPTIN PHOSPHATE
     Route: 065
  7. PANTOPRAZOLE [Suspect]
     Active Substance: PANTOPRAZOLE
     Route: 065
  8. METHOTREXATE. [Concomitant]
     Active Substance: METHOTREXATE
  9. PREDNISOLONE. [Concomitant]
     Active Substance: PREDNISOLONE
     Route: 065
  10. METFORMIN [Suspect]
     Active Substance: METFORMIN HYDROCHLORIDE
     Route: 065
  11. TYLENOL [Suspect]
     Active Substance: ACETAMINOPHEN
     Route: 065
  12. PROLIA [Concomitant]
     Active Substance: DENOSUMAB
     Dosage: FORM SOLUTION SUBCUTANEOUS
     Route: 065
  13. MICARDIS [Suspect]
     Active Substance: TELMISARTAN
     Route: 065
  14. TECTA [Concomitant]
     Active Substance: PANTOPRAZOLE MAGNESIUM
     Route: 065
  15. CYMBALTA [Suspect]
     Active Substance: DULOXETINE HYDROCHLORIDE
     Route: 065
  16. LEUCOVORIN. [Suspect]
     Active Substance: LEUCOVORIN
     Route: 065

REACTIONS (21)
  - Musculoskeletal pain [Unknown]
  - Osteoarthritis [Unknown]
  - Joint swelling [Unknown]
  - Bursitis [Unknown]
  - Osteoporosis [Unknown]
  - Hand deformity [Unknown]
  - Nausea [Unknown]
  - Tendonitis [Unknown]
  - Haemoglobin increased [Unknown]
  - Pain [Unknown]
  - Joint noise [Unknown]
  - Pain in extremity [Unknown]
  - Drug ineffective [Unknown]
  - Hypokinesia [Unknown]
  - Muscle atrophy [Unknown]
  - Scoliosis [Unknown]
  - Rotator cuff syndrome [Unknown]
  - Blood pressure systolic increased [Unknown]
  - Dizziness [Unknown]
  - Myalgia [Unknown]
  - Rheumatoid arthritis [Unknown]

NARRATIVE: CASE EVENT DATE: 2000
